FAERS Safety Report 4823395-3 (Version None)
Quarter: 2005Q4

REPORT INFORMATION
  Report Type: 
  Country: None (occurrence: None)
  Receive Date: 20051107
  Receipt Date: 20051025
  Transmission Date: 20060501
  Serious: Yes (Death)
  Sender: FDA-Public Use
  Company Number: 2005BH002470

PATIENT
  Age: 55 Year
  Sex: Male

DRUGS (1)
  1. DOBUTAMINE HCL [Suspect]

REACTIONS (2)
  - CARDIAC PROCEDURE COMPLICATION [None]
  - VENTRICULAR FIBRILLATION [None]
